FAERS Safety Report 19197788 (Version 1)
Quarter: 2021Q2

REPORT INFORMATION
  Report Type: Spontaneous
  Country: CA (occurrence: CA)
  Receive Date: 20210430
  Receipt Date: 20210430
  Transmission Date: 20210717
  Serious: Yes (Hospitalization)
  Sender: FDA-Public Use
  Company Number: CA-TEVA-2021-CA-1905168

PATIENT
  Age: 53 Year
  Sex: Female
  Weight: 68 kg

DRUGS (3)
  1. CARBOPLATIN. [Suspect]
     Active Substance: CARBOPLATIN
     Indication: BREAST CANCER
     Route: 065
  2. STEMETIL [Concomitant]
     Active Substance: PROCHLORPERAZINE
  3. PACLITAXEL INJECTION [Suspect]
     Active Substance: PACLITAXEL
     Indication: BREAST CANCER
     Route: 065

REACTIONS (1)
  - Febrile neutropenia [Unknown]
